FAERS Safety Report 5224934-3 (Version None)
Quarter: 2007Q1

REPORT INFORMATION
  Report Type: 
  Country: None (occurrence: None)
  Receive Date: 20070126
  Receipt Date: 20070117
  Transmission Date: 20070707
  Serious: Yes (Other)
  Sender: FDA-Public Use
  Company Number: GXKR2007IN00899

PATIENT
  Age: 45 Year
  Sex: Male

DRUGS (2)
  1. CLOZAPINE [Suspect]
     Indication: SCHIZOPHRENIA
     Dosage: 150 MG, QD, UNKNOWN
  2. PHENIRAMINE [Concomitant]

REACTIONS (9)
  - ANGIOEDEMA [None]
  - BLISTER [None]
  - HEREDITARY ANGIOEDEMA [None]
  - NEUTROPHIL PERCENTAGE INCREASED [None]
  - PYREXIA [None]
  - RASH MACULO-PAPULAR [None]
  - SKIN EXFOLIATION [None]
  - VOMITING [None]
  - WHITE BLOOD CELL COUNT INCREASED [None]
